FAERS Safety Report 6852510-5 (Version None)
Quarter: 2010Q3

REPORT INFORMATION
  Report Type: 
  Country: None (occurrence: None)
  Receive Date: 20100717
  Receipt Date: 20071113
  Transmission Date: 20110219
  Serious: No
  Sender: FDA-Public Use
  Company Number: US-PFIZER INC-2007098023

PATIENT
  Sex: Female
  Weight: 46.818 kg

DRUGS (2)
  1. CHANTIX [Suspect]
     Indication: SMOKING CESSATION THERAPY
     Dates: start: 20071001
  2. EFFEXOR [Concomitant]
     Indication: DEPRESSION

REACTIONS (2)
  - MYALGIA [None]
  - NAUSEA [None]
